FAERS Safety Report 8960155 (Version 1)
Quarter: 2012Q4

REPORT INFORMATION
  Report Type: 
  Country: UZ (occurrence: UZ)
  Receive Date: 20121212
  Receipt Date: 20121212
  Transmission Date: 20130627
  Serious: Yes (Death, Other)
  Sender: FDA-Public Use
  Company Number: PHHY2012UZ113274

PATIENT
  Sex: Male

DRUGS (2)
  1. GLIVEC [Suspect]
     Indication: CHRONIC MYELOID LEUKAEMIA
     Dosage: 400 mg
  2. GLIVEC [Suspect]
     Dosage: 600 mg

REACTIONS (3)
  - Thrombocytopenia [Fatal]
  - Blast crisis in myelogenous leukaemia [Fatal]
  - Renal failure [Unknown]
